FAERS Safety Report 25725132 (Version 3)
Quarter: 2025Q4

REPORT INFORMATION
  Report Type: Report from Study
  Country: US (occurrence: US)
  Receive Date: 20250826
  Receipt Date: 20251219
  Transmission Date: 20260118
  Serious: Yes (Other)
  Sender: AMNEAL
  Company Number: US-AMNEAL PHARMACEUTICALS-2025-AMRX-03004

PATIENT
  Sex: Male
  Weight: 121 kg

DRUGS (4)
  1. CARBIDOPA\LEVODOPA [Suspect]
     Active Substance: CARBIDOPA\LEVODOPA
     Indication: Parkinson^s disease
     Dosage: 52.5/210MG 2 CAPSULES, 4 /DAY
     Route: 048
  2. CARBIDOPA\LEVODOPA [Suspect]
     Active Substance: CARBIDOPA\LEVODOPA
     Dosage: 52.5/210MG 2 CAPSULES, 4 /DAY PLUS 1 AT NIGHT IF NEEDED
     Route: 048
     Dates: start: 20250718, end: 202508
  3. CARBIDOPA\LEVODOPA [Suspect]
     Active Substance: CARBIDOPA\LEVODOPA
     Dosage: INCREASED DOSE
     Route: 048
     Dates: start: 20250802
  4. CARBIDOPA\LEVODOPA [Suspect]
     Active Substance: CARBIDOPA\LEVODOPA
     Dosage: 52.5/210MG 2 CAPSULES, 4 /DAY 1 AT BEDTIME IF NEEDED
     Route: 048

REACTIONS (4)
  - Neuropathy peripheral [Unknown]
  - Restless legs syndrome [Recovering/Resolving]
  - Fall [Unknown]
  - Gait disturbance [Unknown]
